FAERS Safety Report 6383914-5 (Version None)
Quarter: 2009Q3

REPORT INFORMATION
  Report Type: 
  Country: None (occurrence: None)
  Receive Date: 20090929
  Receipt Date: 20090929
  Transmission Date: 20100115
  Serious: Yes (Other)
  Sender: FDA-Public Use
  Company Number: None

PATIENT
  Age: 52 Year
  Sex: Female
  Weight: 52.1637 kg

DRUGS (1)
  1. PRISTIQ [Suspect]
     Indication: DEPRESSION
     Dosage: 1 TABLET ONCE DAILY PO
     Route: 048
     Dates: start: 20090810, end: 20090919

REACTIONS (8)
  - ANXIETY [None]
  - CONFUSIONAL STATE [None]
  - HYPERHIDROSIS [None]
  - INSOMNIA [None]
  - PALPITATIONS [None]
  - SUICIDAL IDEATION [None]
  - TREMOR [None]
  - WEIGHT DECREASED [None]
